FAERS Safety Report 8191004-4 (Version None)
Quarter: 2012Q1

REPORT INFORMATION
  Report Type: 
  Country: None (occurrence: None)
  Receive Date: 20120221
  Receipt Date: 20111118
  Transmission Date: 20120608
  Serious: No
  Sender: FDA-Public Use
  Company Number: 1000025630

PATIENT
  Age: 58 Year
  Sex: Male

DRUGS (7)
  1. VICTOZA (LIRAGLUTIDE) (LIRAGLUTIDE) [Concomitant]
  2. VIIBRYD [Suspect]
     Indication: DEPRESSION
     Dosage: 10 MG (10 MG, 1 IN 1 D), ORAL
     Route: 048
     Dates: start: 20111108, end: 20111114
  3. MULTIVITAMINS (MULTIVITAMINS) (MULTIVITAMINS) [Concomitant]
  4. NEXIUM [Concomitant]
  5. RAMIPRIL [Concomitant]
  6. METANX (METANX) (METANX) [Concomitant]
  7. CRESTOR [Concomitant]

REACTIONS (1)
  - BLOOD GLUCOSE INCREASED [None]
